FAERS Safety Report 16625078 (Version 1)
Quarter: 2019Q3

REPORT INFORMATION
  Report Type: Spontaneous
  Country: US (occurrence: US)
  Receive Date: 20190724
  Receipt Date: 20190724
  Transmission Date: 20191004
  Serious: Yes (Life-Threatening)
  Sender: FDA-Public Use
  Company Number: None

PATIENT
  Age: 35 Year
  Sex: Female
  Weight: 76.5 kg

DRUGS (6)
  1. INSULIN [Concomitant]
     Active Substance: INSULIN NOS
  2. PSYLLIUMS HUSK [Concomitant]
  3. VICTOZA [Concomitant]
     Active Substance: LIRAGLUTIDE
  4. FIASP [Suspect]
     Active Substance: INSULIN ASPART
     Indication: TYPE 1 DIABETES MELLITUS
     Dosage: ?          QUANTITY:1 VIAL;?
     Route: 058
     Dates: start: 20190716, end: 20190718
  5. DAILY VITAMIN [Concomitant]
     Active Substance: VITAMINS
  6. ALLERGY PILL [Concomitant]
     Active Substance: UNSPECIFIED INGREDIENT

REACTIONS (2)
  - Blood glucose increased [None]
  - Product formulation issue [None]

NARRATIVE: CASE EVENT DATE: 20190716
